FAERS Safety Report 5100252-9 (Version None)
Quarter: 2006Q3

REPORT INFORMATION
  Report Type: 
  Country: None (occurrence: None)
  Receive Date: 20060731
  Receipt Date: 20060517
  Transmission Date: 20061208
  Serious: No
  Sender: FDA-Public Use
  Company Number: 2006PV013995

PATIENT
  Age: 48 Year
  Sex: Female
  Weight: 92.0802 kg

DRUGS (6)
  1. BYETTA [Suspect]
     Indication: DIABETES MELLITUS NON-INSULIN-DEPENDENT
     Dosage: SEE IMAGE
     Route: 058
     Dates: start: 20051101, end: 20051201
  2. BYETTA [Suspect]
     Indication: DIABETES MELLITUS NON-INSULIN-DEPENDENT
     Dosage: SEE IMAGE
     Route: 058
     Dates: start: 20051201
  3. AMARYL [Concomitant]
  4. ACTOS [Concomitant]
  5. COREG [Concomitant]
  6. DIOVANE [Concomitant]

REACTIONS (2)
  - PRE-EXISTING CONDITION IMPROVED [None]
  - WEIGHT DECREASED [None]
